FAERS Safety Report 8240449-2 (Version None)
Quarter: 2012Q1

REPORT INFORMATION
  Report Type: 
  Country: None (occurrence: None)
  Receive Date: 20120328
  Receipt Date: 20120319
  Transmission Date: 20120608
  Serious: Yes (Hospitalization)
  Sender: FDA-Public Use
  Company Number: GB-ROCHE-1044112

PATIENT
  Age: 32 Year
  Sex: Male
  Weight: 73 kg

DRUGS (8)
  1. MORPHINE SULFATE [Concomitant]
     Dates: start: 20110908
  2. METOCLOPRAMIDE [Concomitant]
     Dates: start: 20111124
  3. FLUOXETINE [Concomitant]
     Dates: start: 20120223
  4. OXAZEPAM [Concomitant]
     Dates: start: 20120225
  5. ACETAMINOPHEN [Concomitant]
     Dates: start: 20120225
  6. DEXAMETHASONE [Concomitant]
     Dates: start: 20120208, end: 20120226
  7. OMEPRAZOLE [Concomitant]
     Dates: start: 20120226
  8. VEMURAFENIB [Suspect]
     Indication: MALIGNANT MELANOMA
     Dosage: DATE OF LAST DOSE PRIOR TO SAE 25/FEB/2012
     Route: 048
     Dates: start: 20110926, end: 20120301

REACTIONS (1)
  - GASTROINTESTINAL HAEMORRHAGE [None]
